FAERS Safety Report 7459578-6 (Version None)
Quarter: 2011Q2

REPORT INFORMATION
  Report Type: 
  Country: None (occurrence: None)
  Receive Date: 20110505
  Receipt Date: 20110426
  Transmission Date: 20111010
  Serious: Yes (Other)
  Sender: FDA-Public Use
  Company Number: BR-PFIZER INC-2011095693

PATIENT
  Sex: Male

DRUGS (4)
  1. OLCADIL [Concomitant]
     Dosage: UNK
     Dates: start: 19920101
  2. AMIODARONE HCL [Suspect]
     Indication: CARDIAC DISORDER
     Dosage: 200 MG, 1X/DAY
     Dates: start: 19930101
  3. DORMONID [Concomitant]
     Dosage: UNK
     Dates: start: 19920101
  4. PLASIL [Concomitant]
     Dosage: UNK
     Dates: start: 20110401

REACTIONS (3)
  - CATARACT [None]
  - DEPOSIT EYE [None]
  - HYPOTHYROIDISM [None]
